FAERS Safety Report 7594951-7 (Version None)
Quarter: 2011Q3

REPORT INFORMATION
  Report Type: 
  Country: None (occurrence: None)
  Receive Date: 20110707
  Receipt Date: 20110628
  Transmission Date: 20111222
  Serious: Yes (Hospitalization)
  Sender: FDA-Public Use
  Company Number: FR-ASTRAZENECA-2011SE39494

PATIENT
  Age: 77 Year
  Sex: Male

DRUGS (10)
  1. ATACAND [Suspect]
     Route: 048
     Dates: end: 20110414
  2. AMLODIPINE [Concomitant]
  3. RABEPRAZOLE SODIUM [Concomitant]
     Route: 048
  4. FUCIDINE CAP [Concomitant]
     Route: 048
  5. PLAVIX [Concomitant]
  6. LASIX [Suspect]
     Route: 048
     Dates: end: 20110414
  7. ATORVASTATIN CALCIUM [Suspect]
     Route: 048
     Dates: end: 20110414
  8. TASIGNA [Suspect]
     Indication: CHRONIC MYELOID LEUKAEMIA
     Route: 048
     Dates: end: 20110414
  9. CLINDAMYCIN HCL [Concomitant]
     Route: 048
  10. CORDARONE [Suspect]
     Route: 048
     Dates: end: 20110414

REACTIONS (3)
  - BRADYARRHYTHMIA [None]
  - RENAL FAILURE ACUTE [None]
  - HYPERKALAEMIA [None]
